FAERS Safety Report 13152384 (Version 1)
Quarter: 2017Q1

REPORT INFORMATION
  Report Type: Spontaneous
  Country: US (occurrence: US)
  Receive Date: 20170125
  Receipt Date: 20170125
  Transmission Date: 20170428
  Serious: Yes (Life-Threatening, Hospitalization, Other)
  Sender: FDA-Public Use
  Company Number: US-ABBVIE-13P-163-1096591-00

PATIENT
  Age: 66 Year
  Sex: Female

DRUGS (14)
  1. RAMIPRIL. [Concomitant]
     Active Substance: RAMIPRIL
     Indication: HYPERTENSION
     Route: 048
     Dates: start: 2006
  2. ALPRAZOLAM. [Concomitant]
     Active Substance: ALPRAZOLAM
     Indication: ANXIETY
     Route: 048
     Dates: start: 20120127, end: 201204
  3. AXITINIB [Suspect]
     Active Substance: AXITINIB
     Indication: RENAL CELL CARCINOMA
     Route: 048
     Dates: start: 20120126, end: 20120219
  4. AXITINIB [Suspect]
     Active Substance: AXITINIB
     Route: 048
     Dates: start: 20120319, end: 20120411
  5. FISH OIL [Concomitant]
     Active Substance: FISH OIL
     Indication: PRODUCT USED FOR UNKNOWN INDICATION
     Dosage: 6 - 1200 MG TABLETS TWICE DAILY
     Route: 048
     Dates: start: 2006, end: 201204
  6. HYDROCHLOROTHIAZIDE. [Concomitant]
     Active Substance: HYDROCHLOROTHIAZIDE
     Indication: PRODUCT USED FOR UNKNOWN INDICATION
     Route: 048
     Dates: start: 20120210, end: 20120423
  7. AXITINIB [Suspect]
     Active Substance: AXITINIB
     Route: 048
     Dates: start: 20120306, end: 20120312
  8. METOPROLOL. [Concomitant]
     Active Substance: METOPROLOL
     Indication: PRODUCT USED FOR UNKNOWN INDICATION
     Route: 048
     Dates: start: 20120209, end: 20120326
  9. VYTORIN [Concomitant]
     Active Substance: EZETIMIBE\SIMVASTATIN
     Indication: HYPERTRIGLYCERIDAEMIA
     Dosage: 10/20 MG DAILY
     Route: 048
     Dates: start: 2006
  10. LEVOTHYROXINE. [Concomitant]
     Active Substance: LEVOTHYROXINE
     Indication: PRODUCT USED FOR UNKNOWN INDICATION
     Route: 048
     Dates: start: 20120215, end: 201206
  11. PROMETHAZINE [Concomitant]
     Active Substance: PROMETHAZINE\PROMETHAZINE HYDROCHLORIDE
     Indication: NAUSEA
     Route: 048
     Dates: start: 20120307, end: 20120423
  12. NIASPAN [Suspect]
     Active Substance: NIACIN
     Indication: HYPERTRIGLYCERIDAEMIA
     Route: 048
     Dates: start: 2006, end: 20120313
  13. AXITINIB [Suspect]
     Active Substance: AXITINIB
     Route: 048
     Dates: start: 20120220, end: 20120305
  14. ASPIRIN. [Concomitant]
     Active Substance: ASPIRIN
     Indication: PRODUCT USED FOR UNKNOWN INDICATION
     Route: 048
     Dates: start: 2006, end: 201204

REACTIONS (6)
  - Platelet count decreased [Recovered/Resolved]
  - Coagulopathy [Recovered/Resolved]
  - International normalised ratio abnormal [Recovered/Resolved]
  - Platelet count decreased [Recovered/Resolved]
  - Post procedural haemorrhage [Recovered/Resolved]
  - Alanine aminotransferase increased [Recovered/Resolved]

NARRATIVE: CASE EVENT DATE: 20120215
